FAERS Safety Report 7089755-8 (Version None)
Quarter: 2010Q4

REPORT INFORMATION
  Report Type: 
  Country: None (occurrence: None)
  Receive Date: 20101108
  Receipt Date: 20100723
  Transmission Date: 20110411
  Serious: No
  Sender: FDA-Public Use
  Company Number: US-ABBOTT-10P-163-0660575-00

PATIENT
  Sex: Female
  Weight: 70.824 kg

DRUGS (4)
  1. TRICOR [Suspect]
     Indication: BLOOD TRIGLYCERIDES INCREASED
     Dates: start: 20080101, end: 20090101
  2. HUMALOG [Concomitant]
     Indication: DIABETES MELLITUS
  3. HUMALIN INSULIN [Concomitant]
     Indication: DIABETES MELLITUS
  4. LOVAZA [Concomitant]
     Indication: BLOOD TRIGLYCERIDES INCREASED
     Dosage: 4 GM DAILY
     Dates: start: 20090101

REACTIONS (1)
  - AMNESIA [None]
